FAERS Safety Report 24258979 (Version 1)
Quarter: 2024Q3

REPORT INFORMATION
  Report Type: Spontaneous
  Country: US (occurrence: None)
  Receive Date: 20240827
  Receipt Date: 20240827
  Transmission Date: 20241017
  Serious: Yes (Other)
  Sender: Public
  Company Number: None

PATIENT
  Age: 46 Year
  Sex: Male
  Weight: 98.1 kg

DRUGS (2)
  1. BUSPIRONE [Suspect]
     Active Substance: BUSPIRONE HYDROCHLORIDE
     Indication: Anxiety
     Dosage: FREQUENCY : TWICE A DAY;?
     Route: 048
     Dates: start: 20231005, end: 20231208
  2. OMEPRAZOLE [Suspect]
     Active Substance: OMEPRAZOLE

REACTIONS (7)
  - Therapy change [None]
  - Nonspecific reaction [None]
  - Drug hypersensitivity [None]
  - Therapy change [None]
  - Therapy cessation [None]
  - Anxiety [None]
  - Peripheral swelling [None]

NARRATIVE: CASE EVENT DATE: 20231126
